FAERS Safety Report 5236018-9 (Version None)
Quarter: 2007Q1

REPORT INFORMATION
  Report Type: 
  Country: None (occurrence: None)
  Receive Date: 20061208
  Receipt Date: 20060524
  Transmission Date: 20070707
  Serious: Yes (Other)
  Sender: FDA-Public Use
  Company Number: 2006UW10135

PATIENT
  Age: 65 Year
  Sex: Male
  Weight: 99.79 kg

DRUGS (2)
  1. CRESTOR [Suspect]
     Indication: HYPERLIPIDAEMIA
     Dosage: 10 MG PO
     Route: 048
     Dates: start: 20060501, end: 20060519
  2. GLIMEPIRIDE [Concomitant]

REACTIONS (1)
  - ERECTILE DYSFUNCTION [None]
